FAERS Safety Report 5756824-1 (Version None)
Quarter: 2008Q2

REPORT INFORMATION
  Report Type: 
  Country: None (occurrence: None)
  Receive Date: 20080603
  Receipt Date: 20080523
  Transmission Date: 20081010
  Serious: Yes (Hospitalization)
  Sender: FDA-Public Use
  Company Number: IT-NOVOPROD-275727

PATIENT
  Sex: Female

DRUGS (1)
  1. ACTRAPHANE 30 [Suspect]
     Indication: DRUG USE FOR UNKNOWN INDICATION
     Dosage: 5 IU, QD
     Dates: start: 20080512, end: 20080515

REACTIONS (1)
  - PUSTULAR PSORIASIS [None]
